FAERS Safety Report 9254450 (Version 1)
Quarter: 2013Q2

REPORT INFORMATION
  Report Type: Spontaneous
  Country: US (occurrence: US)
  Receive Date: 20130425
  Receipt Date: 20130425
  Transmission Date: 20140414
  Serious: No
  Sender: FDA-Public Use
  Company Number: US-BAYER-2013-051398

PATIENT
  Sex: 0

DRUGS (2)
  1. ALEVE CAPLET [Suspect]
     Indication: PYREXIA
  2. IBUPROFEN [Concomitant]

REACTIONS (3)
  - Asthenia [None]
  - Malaise [None]
  - Pyrexia [None]
